FAERS Safety Report 10166451 (Version 1)
Quarter: 2014Q2

REPORT INFORMATION
  Report Type: Spontaneous
  Country: US (occurrence: None)
  Receive Date: 20140509
  Receipt Date: 20140509
  Transmission Date: 20141212
  Serious: Yes (Other)
  Sender: FDA-Public Use
  Company Number: None

PATIENT
  Age: 60 Year
  Sex: Female
  Weight: 103 kg

DRUGS (3)
  1. LEXISCAN [Suspect]
     Indication: SCAN MYOCARDIAL PERFUSION
     Dosage: 0.4MG/5ML ONCE INTRAVENOUS
     Route: 042
     Dates: start: 20140425
  2. CITALOPRAM [Concomitant]
  3. LISINOPRIL-HYDROCHLOROTHIAZIDE [Concomitant]

REACTIONS (2)
  - Dizziness [None]
  - Atrioventricular block [None]
